FAERS Safety Report 8981570 (Version 1)
Quarter: 2012Q4

REPORT INFORMATION
  Report Type: Report from Study
  Country: CA (occurrence: CA)
  Receive Date: 20121223
  Receipt Date: 20121223
  Transmission Date: 20130627
  Serious: Yes (Hospitalization)
  Sender: FDA-Public Use
  Company Number: CA-JNJFOC-20121207319

PATIENT
  Age: 50 Year
  Sex: Male

DRUGS (2)
  1. REMICADE [Suspect]
     Indication: COLITIS ULCERATIVE
     Route: 042
     Dates: start: 201210
  2. REMICADE [Suspect]
     Indication: COLITIS ULCERATIVE
     Dosage: double dose of medication
     Route: 042
     Dates: start: 20121203

REACTIONS (1)
  - Colitis ulcerative [Unknown]
